FAERS Safety Report 7675480-9 (Version None)
Quarter: 2011Q3

REPORT INFORMATION
  Report Type: 
  Country: None (occurrence: None)
  Receive Date: 20110810
  Receipt Date: 20110803
  Transmission Date: 20111222
  Serious: Yes (Hospitalization, Other)
  Sender: FDA-Public Use
  Company Number: JP-PFIZER INC-2011107126

PATIENT
  Age: 35 Year
  Sex: Female
  Weight: 48 kg

DRUGS (3)
  1. AZULFIDINE [Suspect]
     Indication: RHEUMATOID ARTHRITIS
     Dosage: 250 MG, 1X/DAY
     Route: 048
     Dates: start: 20110502, end: 20110517
  2. MUCOSTA [Concomitant]
  3. LOXONIN [Concomitant]

REACTIONS (5)
  - PYREXIA [None]
  - RHABDOMYOLYSIS [None]
  - HEADACHE [None]
  - NEUROPSYCHIATRIC LUPUS [None]
  - MENINGITIS [None]
